FAERS Safety Report 5871252-6 (Version None)
Quarter: 2008Q3

REPORT INFORMATION
  Report Type: 
  Country: None (occurrence: None)
  Receive Date: 20080905
  Receipt Date: 20080825
  Transmission Date: 20090109
  Serious: Yes (Death)
  Sender: FDA-Public Use
  Company Number: US-JNJFOC-20080403791

PATIENT
  Sex: Female
  Weight: 46.27 kg

DRUGS (10)
  1. FENTANYL TRANSDERMAL SYSTEM [Suspect]
     Route: 062
  2. FENTANYL TRANSDERMAL SYSTEM [Suspect]
     Route: 062
  3. FENTANYL TRANSDERMAL SYSTEM [Suspect]
     Indication: CANCER PAIN
     Route: 062
  4. OXYCODONE HCL [Concomitant]
  5. DILAUDID [Concomitant]
  6. XANAX [Concomitant]
  7. ZOFRAN [Concomitant]
  8. PROTONIX [Concomitant]
  9. LORAZEPAM [Concomitant]
  10. ASPIRIN [Concomitant]

REACTIONS (6)
  - BREAST CANCER METASTATIC [None]
  - CARDIOMEGALY [None]
  - DRUG EFFECT DECREASED [None]
  - NAUSEA [None]
  - PULMONARY OEDEMA [None]
  - RESPIRATORY FAILURE [None]
